FAERS Safety Report 12416674 (Version 1)
Quarter: 2016Q2

REPORT INFORMATION
  Report Type: Spontaneous
  Country: CN (occurrence: CN)
  Receive Date: 20160530
  Receipt Date: 20160530
  Transmission Date: 20160815
  Serious: Yes (Hospitalization, Other)
  Sender: FDA-Public Use
  Company Number: CN-JNJFOC-20141103177

PATIENT

DRUGS (3)
  1. RISPERIDONE. [Suspect]
     Active Substance: RISPERIDONE
     Indication: SCHIZOPHRENIFORM DISORDER
     Dosage: 1.5 TO 6 MG
     Route: 048
  2. LITHIUM. [Concomitant]
     Active Substance: LITHIUM
     Route: 065
  3. RISPERIDONE. [Suspect]
     Active Substance: RISPERIDONE
     Indication: SCHIZOPHRENIA
     Dosage: 1.5 TO 6 MG
     Route: 048

REACTIONS (14)
  - Hypersomnia [Unknown]
  - Blood glucose abnormal [Unknown]
  - Adverse event [Unknown]
  - Dizziness [Unknown]
  - Schizophrenia [Unknown]
  - Somnolence [Unknown]
  - Dry mouth [Unknown]
  - Electrocardiogram QT interval abnormal [Unknown]
  - Drug intolerance [Unknown]
  - Constipation [Unknown]
  - Menstruation irregular [Unknown]
  - Urinary hesitation [Unknown]
  - Extrapyramidal disorder [Unknown]
  - Weight increased [Unknown]
